FAERS Safety Report 8614345 (Version 4)
Quarter: 2013Q2

REPORT INFORMATION
  Report Type: Report from Study
  Country: CA (occurrence: CA)
  Receive Date: 20120614
  Receipt Date: 20130404
  Transmission Date: 20140414
  Serious: Yes (Hospitalization)
  Sender: FDA-Public Use
  Company Number: CA-AMGEN-CANCT2012035775

PATIENT
  Age: 44 Year
  Sex: Female
  Weight: 55.3 kg

DRUGS (33)
  1. DENOSUMAB [Suspect]
     Indication: BREAST CANCER
     Dosage: 120 MG, UNK
     Route: 058
     Dates: start: 20110811, end: 20120314
  2. PACLITAXEL [Concomitant]
     Dosage: UNK
     Dates: start: 20110812, end: 20111028
  3. CYCLOPHOSPHAMIDE W/EPIRUBICIN/FLUOROURACIL [Concomitant]
     Dosage: UNK
     Dates: start: 20111104, end: 20120116
  4. VITAMIN D [Concomitant]
     Dosage: 200 IU, UNK
     Route: 048
     Dates: start: 20110811, end: 20120620
  5. CALCIUM [Concomitant]
     Dosage: 600 MG, UNK
     Route: 048
     Dates: start: 20110811, end: 20120620
  6. TYLENOL [Concomitant]
     Indication: HEADACHE
     Dosage: UNK
     Dates: start: 20110831, end: 20120323
  7. TYLENOL [Concomitant]
     Indication: BREAST PAIN
  8. ATIVAN [Concomitant]
     Indication: INSOMNIA
     Dosage: 1 MG, UNK
     Dates: start: 20120323, end: 20120605
  9. ATIVAN [Concomitant]
     Indication: CONVULSION
  10. ROCURONIUM [Concomitant]
     Indication: ANAESTHESIA
     Route: 042
     Dates: start: 20120321, end: 20120321
  11. SUFENTANIL [Concomitant]
     Indication: ANAESTHESIA
     Route: 042
     Dates: start: 20120321, end: 20120321
  12. LOPRESSOR [Concomitant]
     Indication: HYPERTENSION
     Dosage: 5 MG, UNK
     Route: 042
     Dates: start: 20120321, end: 20120321
  13. VERSED [Concomitant]
     Indication: ANAESTHESIA
     Dosage: 1 MG, UNK
     Route: 042
     Dates: start: 20120321, end: 20120321
  14. GRAVOL [Concomitant]
     Indication: NAUSEA
     Dosage: 50 MG, PRN
     Route: 042
     Dates: start: 20120321, end: 20120604
  15. MORPHINE [Concomitant]
     Indication: BREAST PAIN
     Dosage: 5 MG, PRN
     Dates: start: 20120321, end: 20120605
  16. KEFLEX [Concomitant]
     Indication: INFECTION PROPHYLAXIS
     Dosage: 500 MG, QID
     Route: 048
     Dates: start: 20120322, end: 20120429
  17. LACTATED RINGER^S [Concomitant]
     Indication: PROPHYLAXIS AGAINST DEHYDRATION
     Dosage: UNK
     Route: 042
     Dates: start: 20120321, end: 20120322
  18. DILAUDID [Concomitant]
     Indication: BREAST PAIN
     Dosage: 1 MG, PRN
     Dates: start: 20120321, end: 20120413
  19. CEFTRIAXONE [Concomitant]
     Indication: INFECTION PROPHYLAXIS
     Dosage: 1 G, TID
     Route: 042
     Dates: start: 20120321, end: 20120322
  20. PROPOFOL [Concomitant]
     Indication: ANAESTHESIA
     Dosage: 150 MG, UNK
     Route: 042
     Dates: start: 20120321, end: 20120321
  21. XYLOCAINE [Concomitant]
     Indication: ANAESTHESIA
     Dosage: 40 MG, UNK
     Route: 042
     Dates: start: 20120321, end: 20120321
  22. MOTRIN [Concomitant]
     Indication: HEADACHE
     Dosage: 400 MG, QD
     Route: 048
     Dates: start: 20120601, end: 20120603
  23. MAXERAN [Concomitant]
     Indication: NAUSEA
     Dosage: 10 MG, UNK
     Route: 042
     Dates: start: 20120604, end: 20120604
  24. STEMETIL [Concomitant]
     Indication: NAUSEA
     Dosage: 10 MG, UNK
     Route: 042
     Dates: start: 20120605, end: 20120605
  25. LARGACTIL [Concomitant]
     Indication: HEADACHE
     Dosage: 12.5 MG, UNK
     Route: 042
     Dates: start: 20120605, end: 20120605
  26. NAPROXEN [Concomitant]
     Indication: HEADACHE
     Dosage: 375 MG, UNK
     Route: 048
     Dates: start: 20120605, end: 20120606
  27. CEPHALEXIN [Concomitant]
     Indication: INFECTION PROPHYLAXIS
     Dosage: 500 MG, QID
     Route: 048
     Dates: start: 20120423, end: 20120430
  28. HEPARIN [Concomitant]
     Indication: THROMBOSIS PROPHYLAXIS
     Dosage: UNK IU, UNK
     Route: 058
     Dates: start: 20120321, end: 20120607
  29. HEPARIN [Concomitant]
     Indication: CEREBRAL VENOUS THROMBOSIS
  30. NOLVADEX [Concomitant]
     Dosage: UNK
     Dates: start: 20120504, end: 20120604
  31. ZOLADEX [Concomitant]
     Indication: BREAST CANCER
     Dosage: UNK
     Dates: start: 20120507
  32. MAXIFER [Concomitant]
     Dosage: UNK
     Dates: start: 201205
  33. ANCEF [Concomitant]
     Route: 042
     Dates: start: 20120321, end: 20120322

REACTIONS (1)
  - Cerebral venous thrombosis [Recovered/Resolved]
